FAERS Safety Report 7356040-6 (Version None)
Quarter: 2011Q1

REPORT INFORMATION
  Report Type: 
  Country: None (occurrence: None)
  Receive Date: 20110316
  Receipt Date: 20110307
  Transmission Date: 20110831
  Serious: Yes (Death, Hospitalization)
  Sender: FDA-Public Use
  Company Number: JP-AMGEN-KDC435275

PATIENT
  Age: 52 Year
  Sex: Male
  Weight: 61 kg

DRUGS (10)
  1. PANITUMUMAB [Suspect]
     Indication: COLORECTAL CANCER
     Dosage: 6 MG/KG, Q2WK
     Route: 041
     Dates: start: 20100802, end: 20100802
  2. LEUCOVORIN CALCIUM [Suspect]
     Indication: COLORECTAL CANCER
     Route: 041
     Dates: start: 20100927
  3. 5-FU [Suspect]
     Indication: COLORECTAL CANCER
     Route: 040
     Dates: start: 20100927
  4. CORTICOSTEROIDS [Concomitant]
     Indication: PROPHYLAXIS
     Route: 065
  5. FENTOS TAPE [Concomitant]
     Route: 062
  6. ANTIHISTAMINES [Concomitant]
     Indication: PROPHYLAXIS
     Route: 065
  7. PANITUMUMAB [Suspect]
     Dosage: 6 MG/KG, Q2WK
     Route: 041
     Dates: start: 20100913, end: 20101122
  8. 5-FU [Suspect]
     Route: 041
     Dates: start: 20100927
  9. SANDOSTATIN [Concomitant]
     Route: 042
  10. CAMPTOSAR [Suspect]
     Indication: COLORECTAL CANCER
     Route: 041
     Dates: start: 20100927

REACTIONS (7)
  - DIARRHOEA [None]
  - DERMATITIS ACNEIFORM [None]
  - COLORECTAL CANCER [None]
  - NEUTROPHIL COUNT DECREASED [None]
  - DUODENAL OBSTRUCTION [None]
  - VOMITING [None]
  - RENAL FAILURE ACUTE [None]
